FAERS Safety Report 21385831 (Version 1)
Quarter: 2022Q3

REPORT INFORMATION
  Report Type: Spontaneous
  Country: US (occurrence: US)
  Receive Date: 20220928
  Receipt Date: 20220928
  Transmission Date: 20221027
  Serious: Yes (Hospitalization, Other)
  Sender: FDA-Public Use
  Company Number: US-drreddys-SPO/USA/22/0154795

PATIENT
  Age: 78 Year
  Sex: Female
  Weight: 45.45 kg

DRUGS (22)
  1. GEMCITABINE [Suspect]
     Active Substance: GEMCITABINE
     Indication: Adenocarcinoma pancreas
     Dosage: (AT 1000 MG/M2, SHORT OVER 30 MIN FOR 1 DAY IN NS 250 ML) (C1D1)
     Route: 042
     Dates: start: 20220629, end: 20220629
  2. GEMCITABINE [Suspect]
     Active Substance: GEMCITABINE
     Route: 042
     Dates: start: 20220729, end: 20220729
  3. ZOLBETUXIMAB [Suspect]
     Active Substance: ZOLBETUXIMAB
     Indication: Adenocarcinoma pancreas
     Dosage: (AT 992.9577 MG/M2, SHORT OVER 2 HOUR FOR 1 DAY IN NS 705 ML) (C1/D1)
     Route: 042
     Dates: start: 20220628, end: 20220628
  4. ZOLBETUXIMAB [Suspect]
     Active Substance: ZOLBETUXIMAB
     Dosage: (OF 20 MG/ML, SHORT OVER 2 HOUR FOR 1 DAY IN NS 334.2 ML) (C1/D1)
     Route: 042
     Dates: start: 20220629, end: 20220629
  5. ZOLBETUXIMAB [Suspect]
     Active Substance: ZOLBETUXIMAB
     Route: 042
     Dates: start: 20220728, end: 20220729
  6. ABRAXANE [Suspect]
     Active Substance: PACLITAXEL
     Indication: Adenocarcinoma pancreas
     Dosage: (AT 125 MG/M2, SHORT OVER 30 MIN FOR 1 DAY) (C1D1)
     Route: 042
     Dates: start: 20220629, end: 20220629
  7. ABRAXANE [Suspect]
     Active Substance: PACLITAXEL
     Route: 042
     Dates: start: 20220729, end: 20220729
  8. ONDANSETRON [Concomitant]
     Active Substance: ONDANSETRON
     Indication: Product used for unknown indication
     Dates: start: 20220629, end: 20220629
  9. OLANZAPINE [Concomitant]
     Active Substance: OLANZAPINE
     Indication: Product used for unknown indication
     Dates: start: 20220711, end: 20220715
  10. PALONOSETRON HYDROCHLORIDE [Concomitant]
     Active Substance: PALONOSETRON HYDROCHLORIDE
     Indication: Product used for unknown indication
     Dates: start: 20220628, end: 20220628
  11. ELIQUIS [Concomitant]
     Active Substance: APIXABAN
     Indication: Deep vein thrombosis
     Dates: start: 202109
  12. FUROSEMIDE [Concomitant]
     Active Substance: FUROSEMIDE
     Indication: Product used for unknown indication
     Dates: start: 202110
  13. Hydrocordone/acetaminophen [Concomitant]
     Indication: Product used for unknown indication
     Dosage: ONGOING
     Dates: start: 202206
  14. ALPRAZOLAM [Concomitant]
     Active Substance: ALPRAZOLAM
     Indication: Product used for unknown indication
     Dates: start: 20220621
  15. VITAMIN B1 [Concomitant]
     Active Substance: THIAMINE HYDROCHLORIDE
     Indication: Product used for unknown indication
     Dates: start: 202111
  16. VITAMIN B12 [Concomitant]
     Active Substance: CYANOCOBALAMIN
     Indication: Product used for unknown indication
     Dates: start: 202111
  17. VITAMIN B6 [Concomitant]
     Active Substance: PYRIDOXINE HYDROCHLORIDE
     Indication: Product used for unknown indication
     Dates: start: 202111
  18. MIRALAX [Concomitant]
     Active Substance: POLYETHYLENE GLYCOL 3350
     Indication: Product used for unknown indication
     Dates: start: 20220623
  19. DULCOLAX NOS [Concomitant]
     Active Substance: BISACODYL OR DOCUSATE SODIUM
     Indication: Product used for unknown indication
     Dates: start: 20220623
  20. XANAX [Concomitant]
     Active Substance: ALPRAZOLAM
     Indication: Anxiety
     Dosage: ONGOING
     Dates: start: 202206
  21. SENNOSIDES [Concomitant]
     Active Substance: SENNOSIDES
     Indication: Product used for unknown indication
  22. PEPCID [Concomitant]
     Active Substance: FAMOTIDINE
     Indication: Nausea

REACTIONS (3)
  - Failure to thrive [Not Recovered/Not Resolved]
  - Hypokalaemia [Recovered/Resolved]
  - Dyspnoea [Unknown]

NARRATIVE: CASE EVENT DATE: 20220725
